FAERS Safety Report 8105568-X (Version None)
Quarter: 2012Q1

REPORT INFORMATION
  Report Type: 
  Country: None (occurrence: None)
  Receive Date: 20120201
  Receipt Date: 20080126
  Transmission Date: 20120608
  Serious: Yes (Other)
  Sender: FDA-Public Use
  Company Number: ES-SANTEN INC.-INC-11-000238

PATIENT
  Age: 40 Year
  Sex: Female

DRUGS (2)
  1. TIMOLOL MALEATE [Suspect]
     Indication: OCULAR HYPERTENSION
     Route: 047
  2. AZOPT [Concomitant]

REACTIONS (3)
  - CHOROIDAL DETACHMENT [None]
  - MACULOPATHY [None]
  - HYPOTONY OF EYE [None]
